FAERS Safety Report 13199686 (Version 3)
Quarter: 2017Q3

REPORT INFORMATION
  Report Type: Spontaneous
  Country: US (occurrence: US)
  Receive Date: 20170208
  Receipt Date: 20170814
  Transmission Date: 20171127
  Serious: No
  Sender: FDA-Public Use
  Company Number: US-ELI_LILLY_AND_COMPANY-US201701003643

PATIENT
  Sex: Female

DRUGS (2)
  1. CYMBALTA [Suspect]
     Active Substance: DULOXETINE HYDROCHLORIDE
     Indication: INTERVERTEBRAL DISC PROTRUSION
     Dosage: 30 MG, UNKNOWN
     Route: 065
     Dates: start: 2008, end: 201704
  2. DULOXETINE HYDROCHLORIDE. [Suspect]
     Active Substance: DULOXETINE HYDROCHLORIDE
     Indication: INTERVERTEBRAL DISC PROTRUSION
     Dosage: 30 MG, UNKNOWN
     Route: 065

REACTIONS (23)
  - Arthralgia [Not Recovered/Not Resolved]
  - Headache [Recovered/Resolved]
  - Depression [Recovered/Resolved]
  - Headache [Not Recovered/Not Resolved]
  - Paraesthesia [Unknown]
  - Amnesia [Not Recovered/Not Resolved]
  - Decreased appetite [Not Recovered/Not Resolved]
  - Pain in extremity [Recovered/Resolved]
  - Panic attack [Not Recovered/Not Resolved]
  - Off label use [Unknown]
  - Nausea [Recovered/Resolved]
  - Decreased appetite [Unknown]
  - Pain [Unknown]
  - Weight decreased [Not Recovered/Not Resolved]
  - Feeling abnormal [Unknown]
  - Nausea [Not Recovered/Not Resolved]
  - Dizziness [Recovered/Resolved]
  - Anxiety [Recovered/Resolved]
  - Depression [Not Recovered/Not Resolved]
  - Paraesthesia [Not Recovered/Not Resolved]
  - Withdrawal syndrome [Not Recovered/Not Resolved]
  - Vomiting [Not Recovered/Not Resolved]
  - Insomnia [Recovered/Resolved]
